FAERS Safety Report 21120780 (Version 1)
Quarter: 2022Q3

REPORT INFORMATION
  Report Type: Spontaneous
  Country: US (occurrence: None)
  Receive Date: 20220722
  Receipt Date: 20220722
  Transmission Date: 20221027
  Serious: No
  Sender: FDA-Public Use
  Company Number: None

PATIENT
  Age: 65 Year
  Sex: Female
  Weight: 86.4 kg

DRUGS (7)
  1. PAXLOVID [Suspect]
     Active Substance: NIRMATRELVIR\RITONAVIR
     Indication: COVID-19
     Dosage: OTHER QUANTITY : 3 TABLET(S);?FREQUENCY : TWICE A DAY;?
     Route: 048
  2. LISINOPRIL [Concomitant]
  3. FLUSH-FREE NIACIN [Concomitant]
  4. KRILL OIL [Concomitant]
  5. CO-Q 10 [Concomitant]
  6. VITAMIN B12 [Concomitant]
  7. CETIRIZINE [Concomitant]

REACTIONS (4)
  - Dysgeusia [None]
  - Blood pressure increased [None]
  - Abdominal discomfort [None]
  - Pain [None]

NARRATIVE: CASE EVENT DATE: 20220720
